FAERS Safety Report 7740017-2 (Version None)
Quarter: 2011Q3

REPORT INFORMATION
  Report Type: 
  Country: None (occurrence: None)
  Receive Date: 20110909
  Receipt Date: 20110831
  Transmission Date: 20111222
  Serious: Yes (Other)
  Sender: FDA-Public Use
  Company Number: US-AMGEN-USASP2011044769

PATIENT
  Age: 53 Year
  Sex: Male

DRUGS (1)
  1. SENSIPAR [Suspect]
     Indication: PRODUCT USED FOR UNKNOWN INDICATION
     Dosage: 30 MG, QD
     Dates: start: 20110805, end: 20110817

REACTIONS (7)
  - HYPOAESTHESIA [None]
  - HYPOAESTHESIA ORAL [None]
  - MUSCLE TIGHTNESS [None]
  - SYNCOPE [None]
  - PARAESTHESIA ORAL [None]
  - FATIGUE [None]
  - HYPERHIDROSIS [None]
